FAERS Safety Report 9428356 (Version 1)
Quarter: 2013Q3

REPORT INFORMATION
  Report Type: Report from Study
  Country: US (occurrence: US)
  Receive Date: 20130730
  Receipt Date: 20130730
  Transmission Date: 20140515
  Serious: Yes (Other)
  Sender: FDA-Public Use
  Company Number: US-ABBOTT-12P-163-1013081-00

PATIENT
  Sex: Male
  Weight: 93.98 kg

DRUGS (12)
  1. NIASPAN (COATED) [Suspect]
     Indication: HIGH DENSITY LIPOPROTEIN DECREASED
     Dates: start: 2007, end: 2008
  2. NIASPAN (COATED) [Suspect]
     Indication: LOW DENSITY LIPOPROTEIN INCREASED
     Dates: start: 2009, end: 201202
  3. NIASPAN (COATED) [Suspect]
     Indication: BLOOD CHOLESTEROL INCREASED
     Dates: start: 20121124
  4. NIACIN [Suspect]
     Indication: HIGH DENSITY LIPOPROTEIN DECREASED
     Dates: start: 201202
  5. NIACIN [Suspect]
     Indication: LOW DENSITY LIPOPROTEIN INCREASED
  6. NIACIN [Suspect]
     Indication: BLOOD CHOLESTEROL INCREASED
  7. OMEPRAZOLE [Concomitant]
     Indication: GASTROOESOPHAGEAL REFLUX DISEASE
  8. SIMVASTATIN [Concomitant]
     Indication: BLOOD CHOLESTEROL INCREASED
  9. DOXAZOSIN [Concomitant]
     Indication: PRODUCT USED FOR UNKNOWN INDICATION
  10. BYSTOLIC [Concomitant]
     Indication: HYPERTENSION
  11. MICARDIS [Concomitant]
     Indication: HYPERTENSION
  12. WARFARIN [Concomitant]
     Indication: ANTICOAGULANT THERAPY

REACTIONS (4)
  - Atrial fibrillation [Not Recovered/Not Resolved]
  - Sleep apnoea syndrome [Unknown]
  - High density lipoprotein abnormal [Unknown]
  - Low density lipoprotein abnormal [Unknown]
